FAERS Safety Report 8180662-6 (Version None)
Quarter: 2012Q1

REPORT INFORMATION
  Report Type: 
  Country: None (occurrence: None)
  Receive Date: 20120302
  Receipt Date: 20120224
  Transmission Date: 20120608
  Serious: Yes (Other)
  Sender: FDA-Public Use
  Company Number: US-JNJFOC-20120214328

PATIENT
  Sex: Female
  Weight: 86.18 kg

DRUGS (2)
  1. FENTANYL-100 [Suspect]
     Indication: FIBROMYALGIA
     Route: 062
     Dates: start: 20110901
  2. FENTANYL-100 [Suspect]
     Indication: HEADACHE
     Route: 062
     Dates: start: 20110901

REACTIONS (4)
  - ANXIETY [None]
  - TREATMENT NONCOMPLIANCE [None]
  - PARANOIA [None]
  - WITHDRAWAL SYNDROME [None]
